FAERS Safety Report 4945586-3 (Version None)
Quarter: 2006Q1

REPORT INFORMATION
  Report Type: 
  Country: None (occurrence: None)
  Receive Date: 20060316
  Receipt Date: 20060221
  Transmission Date: 20060701
  Serious: Yes (Hospitalization)
  Sender: FDA-Public Use
  Company Number: US-MERCK-0602USA05269

PATIENT
  Age: 65 Year
  Sex: Male
  Weight: 68 kg

DRUGS (19)
  1. VIOXX [Suspect]
     Indication: ARTHRITIS
     Route: 048
     Dates: start: 19990101, end: 20040930
  2. TYLENOL (CAPLET) [Concomitant]
     Route: 065
  3. ADVIL [Concomitant]
     Route: 065
  4. LIMBITROL TABLETS [Concomitant]
     Route: 048
  5. PRILOSEC [Concomitant]
     Route: 048
  6. PLAVIX [Concomitant]
     Route: 048
  7. TIAZAC [Concomitant]
     Route: 048
  8. FLEXERIL [Concomitant]
     Route: 048
  9. MITOMYCIN [Concomitant]
     Indication: BLADDER CANCER
     Route: 065
  10. LOTREL [Concomitant]
     Route: 048
  11. NEXIUM [Concomitant]
     Route: 048
  12. XANAX [Concomitant]
     Route: 048
  13. XANAX [Concomitant]
     Route: 048
  14. HYZAAR [Concomitant]
     Route: 048
  15. LEXAPRO [Concomitant]
     Route: 048
  16. PROZAC [Concomitant]
     Route: 048
  17. CIALIS [Concomitant]
     Route: 065
  18. BEXTRA [Concomitant]
     Route: 065
  19. ATENOLOL [Concomitant]
     Route: 048

REACTIONS (34)
  - ANGINA UNSTABLE [None]
  - AORTIC VALVE INCOMPETENCE [None]
  - ASTHENIA [None]
  - ATRIAL FIBRILLATION [None]
  - BACK PAIN [None]
  - BLADDER CANCER [None]
  - BLADDER NEOPLASM [None]
  - BLOOD TRIGLYCERIDES INCREASED [None]
  - BRONCHITIS ACUTE [None]
  - CHEST PAIN [None]
  - CHOLELITHIASIS [None]
  - CORONARY ARTERY DISEASE [None]
  - COUGH [None]
  - FACET JOINT SYNDROME [None]
  - GASTRITIS [None]
  - GASTROOESOPHAGEAL REFLUX DISEASE [None]
  - HELICOBACTER INFECTION [None]
  - HERNIA [None]
  - HIATUS HERNIA [None]
  - HYPONATRAEMIA [None]
  - INTERVERTEBRAL DISC PROTRUSION [None]
  - MITRAL VALVE INCOMPETENCE [None]
  - MITRAL VALVE PROLAPSE [None]
  - MYOCARDIAL INFARCTION [None]
  - OEDEMA PERIPHERAL [None]
  - OSTEOARTHRITIS [None]
  - REFLUX OESOPHAGITIS [None]
  - RETINAL DETACHMENT [None]
  - SALMONELLOSIS [None]
  - SEPSIS [None]
  - SINUSITIS [None]
  - SLEEP APNOEA SYNDROME [None]
  - SPINAL OSTEOARTHRITIS [None]
  - WEIGHT INCREASED [None]
